FAERS Safety Report 11878026 (Version 2)
Quarter: 2016Q1

REPORT INFORMATION
  Report Type: Spontaneous
  Country: DK (occurrence: DK)
  Receive Date: 20151230
  Receipt Date: 20160108
  Transmission Date: 20160526
  Serious: Yes (Death)
  Sender: FDA-Public Use
  Company Number: DK-TEVA-620595ACC

PATIENT
  Age: 74 Year
  Sex: Male

DRUGS (8)
  1. FILGRASTIM [Concomitant]
     Active Substance: FILGRASTIM
     Indication: NEUTROPENIA
     Route: 065
  2. REVLIMID [Suspect]
     Active Substance: LENALIDOMIDE
     Indication: PLASMA CELL MYELOMA
     Route: 048
     Dates: start: 20121203, end: 20130627
  3. BORTEZOMIB [Suspect]
     Active Substance: BORTEZOMIB
     Indication: PLASMA CELL MYELOMA
     Route: 041
     Dates: start: 20121204, end: 20130627
  4. DEXAMETHASONE. [Suspect]
     Active Substance: DEXAMETHASONE
     Indication: PLASMA CELL MYELOMA
     Route: 048
     Dates: start: 20121203, end: 20130627
  5. ARANESP [Concomitant]
     Active Substance: DARBEPOETIN ALFA
     Indication: MYELODYSPLASTIC SYNDROME
     Route: 058
     Dates: start: 20140320
  6. DOXORUBICIN [Suspect]
     Active Substance: DOXORUBICIN
     Indication: PLASMA CELL MYELOMA
     Route: 041
     Dates: start: 20121203, end: 20130627
  7. ARANESP [Concomitant]
     Active Substance: DARBEPOETIN ALFA
     Indication: ANAEMIA
     Route: 058
     Dates: start: 20130131
  8. SENDOXAN [Suspect]
     Active Substance: CYCLOPHOSPHAMIDE
     Indication: PLASMA CELL MYELOMA
     Route: 041
     Dates: start: 20121203, end: 20130627

REACTIONS (1)
  - Myelodysplastic syndrome [Fatal]

NARRATIVE: CASE EVENT DATE: 20140324
